FAERS Safety Report 9434620 (Version 1)
Quarter: 2013Q3

REPORT INFORMATION
  Report Type: Spontaneous
  Country: US (occurrence: US)
  Receive Date: 20130801
  Receipt Date: 20130801
  Transmission Date: 20140515
  Serious: No
  Sender: FDA-Public Use
  Company Number: US-PFIZER INC-2013222971

PATIENT
  Age: 43 Year
  Sex: Male
  Weight: 84 kg

DRUGS (10)
  1. NEURONTIN [Suspect]
     Indication: NEURALGIA
     Dosage: 2100 MG, 1X/DAY
     Dates: end: 2013
  2. SIMVASTATIN [Suspect]
     Indication: BLOOD CHOLESTEROL INCREASED
     Dosage: 40 MG, 1X/DAY
  3. SEROQUEL [Concomitant]
     Indication: INSOMNIA
     Dosage: 200 MG, 1X/DAY
  4. HYDROXYZINE [Concomitant]
     Indication: INSOMNIA
     Dosage: 50 MG, 1X/DAY
  5. ATIVAN [Concomitant]
     Indication: INSOMNIA
     Dosage: 2 MG, 1X/DAY
  6. AMBIEN [Concomitant]
     Indication: INSOMNIA
     Dosage: 10 MG, 1X/DAY
  7. CYMBALTA [Concomitant]
     Indication: POST-TRAUMATIC STRESS DISORDER
     Dosage: 90 MG, 1X/DAY
  8. CYMBALTA [Concomitant]
     Indication: DEPRESSION
  9. CYMBALTA [Concomitant]
     Indication: ANXIETY
  10. METHADONE [Concomitant]
     Indication: NEURALGIA
     Dosage: 10 MG, 2X/DAY

REACTIONS (1)
  - Drug ineffective [Unknown]
